FAERS Safety Report 12522106 (Version 1)
Quarter: 2016Q3

REPORT INFORMATION
  Report Type: Spontaneous
  Country: CH (occurrence: CH)
  Receive Date: 20160701
  Receipt Date: 20160701
  Transmission Date: 20161109
  Serious: Yes (Other)
  Sender: FDA-Public Use
  Company Number: CH-GLAXOSMITHKLINE-CH2016GSK089729

PATIENT
  Sex: Male

DRUGS (1)
  1. CEFUROXIME. [Suspect]
     Active Substance: CEFUROXIME
     Indication: ANTIBIOTIC PROPHYLAXIS

REACTIONS (6)
  - Anaphylactic reaction [Unknown]
  - Myocardial infarction [Unknown]
  - Urticaria [Unknown]
  - Chest pain [Unknown]
  - Dyspnoea [Unknown]
  - Electrocardiogram ST segment elevation [Unknown]
